FAERS Safety Report 8105660-X (Version None)
Quarter: 2012Q1

REPORT INFORMATION
  Report Type: 
  Country: None (occurrence: None)
  Receive Date: 20120201
  Receipt Date: 20120125
  Transmission Date: 20120608
  Serious: Yes (Other)
  Sender: FDA-Public Use
  Company Number: CHPA2012DK002066

PATIENT
  Sex: Female

DRUGS (1)
  1. OTRIVIN [Suspect]
     Dosage: UNK, FOR MORE THAN 8 YEARS
     Route: 045

REACTIONS (4)
  - DRUG DEPENDENCE [None]
  - SENSORY DISTURBANCE [None]
  - INCORRECT DRUG ADMINISTRATION DURATION [None]
  - PARAESTHESIA [None]
